FAERS Safety Report 11363364 (Version 2)
Quarter: 2015Q3

REPORT INFORMATION
  Report Type: Report from Study
  Country: US (occurrence: US)
  Receive Date: 20150811
  Receipt Date: 20150901
  Transmission Date: 20151125
  Serious: Yes (Life-Threatening, Other)
  Sender: FDA-Public Use
  Company Number: US-009507513-1508USA001489

PATIENT

DRUGS (7)
  1. VALPROIC ACID. [Suspect]
     Active Substance: VALPROIC ACID
     Dosage: 15 MG/KG, QD, ONE WEEK BEFORE FIRST DAY OF RT
  2. VALPROIC ACID. [Suspect]
     Active Substance: VALPROIC ACID
     Dosage: 10 MG/KG, QD, ONE WEEK BEFORE FIRST DAY OF  RT
  3. TEMODAR [Suspect]
     Active Substance: TEMOZOLOMIDE
     Indication: GLIOBLASTOMA
     Dosage: 150 MG/M2, FOR 5 DAYS FOR 1 CYCLE
     Route: 048
  4. PENTAMIDINE ISETHIONATE [Concomitant]
     Active Substance: PENTAMIDINE ISETHIONATE
     Indication: PROPHYLAXIS
  5. TEMODAR [Suspect]
     Active Substance: TEMOZOLOMIDE
     Dosage: 75 MG/M2, QD
     Route: 048
  6. VALPROIC ACID. [Suspect]
     Active Substance: VALPROIC ACID
     Indication: GLIOBLASTOMA
     Dosage: 25 MG/KG, BID
     Route: 048
  7. TEMODAR [Suspect]
     Active Substance: TEMOZOLOMIDE
     Dosage: 200 MG/M2, EVERY 4 WEEKS IF TOLERATED AND NO TUMOR PROGRESSION DETECTED
     Route: 048

REACTIONS (3)
  - General symptom [Unknown]
  - Haematotoxicity [Unknown]
  - Bone marrow toxicity [Unknown]
